FAERS Safety Report 6607015-3 (Version None)
Quarter: 2010Q1

REPORT INFORMATION
  Report Type: 
  Country: None (occurrence: None)
  Receive Date: 20100226
  Receipt Date: 20100218
  Transmission Date: 20100710
  Serious: Yes (Hospitalization)
  Sender: FDA-Public Use
  Company Number: US-AMGEN-QUU393899

PATIENT
  Sex: Female

DRUGS (20)
  1. SENSIPAR [Suspect]
     Indication: HYPERPARATHYROIDISM SECONDARY
  2. SENSIPAR [Suspect]
     Indication: RENAL FAILURE CHRONIC
  3. EPOGEN [Suspect]
     Indication: DIALYSIS
  4. ACETAMINOPHEN [Concomitant]
  5. CIPROFLOXACIN [Concomitant]
  6. CLONIDINE [Concomitant]
  7. DILTIAZEM HCL [Concomitant]
  8. FLUTICASONE [Concomitant]
  9. INSULIN [Concomitant]
  10. KEPPRA [Concomitant]
  11. LEVOTHYROXINE [Concomitant]
  12. NEBIVOLOL [Concomitant]
  13. PANTOPRAZOLE [Concomitant]
  14. UNSPECIFIED MEDICATION [Concomitant]
  15. UNSPECIFIED MEDICATION [Concomitant]
  16. VANCOMYCIN [Concomitant]
  17. VITAMIN B COMPLEX CAP [Concomitant]
  18. PROPOFOL [Concomitant]
  19. ELECTROLYTES NOS [Concomitant]
  20. PARICALCITOL [Concomitant]

REACTIONS (3)
  - CONVULSION [None]
  - LOSS OF CONSCIOUSNESS [None]
  - URINARY TRACT INFECTION [None]
